FAERS Safety Report 11268412 (Version 2)
Quarter: 2015Q3

REPORT INFORMATION
  Report Type: Spontaneous
  Country: US (occurrence: US)
  Receive Date: 20150714
  Receipt Date: 20150805
  Transmission Date: 20151125
  Serious: No
  Sender: FDA-Public Use
  Company Number: US-JNJFOC-20150613617

PATIENT
  Age: 79 Year
  Sex: Male
  Weight: 88.45 kg

DRUGS (6)
  1. XARELTO [Suspect]
     Active Substance: RIVAROXABAN
     Indication: ATRIAL FIBRILLATION
     Dosage: STRENGTH: 20MG,
     Route: 048
     Dates: start: 20150610
  2. ASPIRIN. [Suspect]
     Active Substance: ASPIRIN
     Indication: PRODUCT USED FOR UNKNOWN INDICATION
     Route: 065
     Dates: end: 20150601
  3. XARELTO [Suspect]
     Active Substance: RIVAROXABAN
     Indication: CEREBROVASCULAR ACCIDENT PROPHYLAXIS
     Dosage: STRENGTH: 20MG,
     Route: 048
     Dates: start: 20150610
  4. LIPITOR [Concomitant]
     Active Substance: ATORVASTATIN CALCIUM
     Dosage: STRENGTH: 10MG
     Route: 048
     Dates: start: 1995, end: 1997
  5. CITRACAL D [Concomitant]
     Route: 048
     Dates: start: 1995, end: 2005
  6. METOPROLOL [Concomitant]
     Active Substance: METOPROLOL
     Dosage: STRENGTH: 50MG
     Route: 048
     Dates: start: 1995, end: 1996

REACTIONS (5)
  - Oral papilloma [Recovered/Resolved]
  - Dysgeusia [Recovered/Resolved]
  - Hypertension [Unknown]
  - Chromaturia [Unknown]
  - Blood blister [Recovered/Resolved]

NARRATIVE: CASE EVENT DATE: 20150611
